FAERS Safety Report 9517093 (Version 1)
Quarter: 2013Q3

REPORT INFORMATION
  Report Type: Spontaneous
  Country: US (occurrence: US)
  Receive Date: 20130911
  Receipt Date: 20130911
  Transmission Date: 20140515
  Serious: Yes (Other)
  Sender: FDA-Public Use
  Company Number: US-TEVA-431509USA

PATIENT
  Sex: Female

DRUGS (4)
  1. PROAIR HFA [Suspect]
     Route: 055
  2. MUCOMYST [Concomitant]
  3. ANTIBIOTIC [Concomitant]
  4. ROBITUSSIN DX [Concomitant]

REACTIONS (2)
  - Pneumonia [Unknown]
  - Dyspnoea [Unknown]
